FAERS Safety Report 15738951 (Version 1)
Quarter: 2018Q4

REPORT INFORMATION
  Report Type: Spontaneous
  Country: US (occurrence: US)
  Receive Date: 20181219
  Receipt Date: 20181219
  Transmission Date: 20190205
  Serious: No
  Sender: FDA-Public Use
  Company Number: US-ASTRAZENECA-2018SF56102

PATIENT
  Age: 24422 Day
  Sex: Female
  Weight: 81.6 kg

DRUGS (3)
  1. BYDUREON BCISE [Suspect]
     Active Substance: EXENATIDE
     Indication: TYPE 2 DIABETES MELLITUS
     Route: 058
  2. ATORVASTATIN [Concomitant]
     Active Substance: ATORVASTATIN
     Indication: BLOOD CHOLESTEROL
     Route: 048
  3. ZETIA [Concomitant]
     Active Substance: EZETIMIBE
     Indication: BLOOD CHOLESTEROL
     Route: 048

REACTIONS (6)
  - Body height decreased [Unknown]
  - Injection site mass [Unknown]
  - Injection site extravasation [Unknown]
  - Device malfunction [Unknown]
  - Asthma [Unknown]
  - Injection site pruritus [Unknown]
